FAERS Safety Report 9015477 (Version 1)
Quarter: 2013Q1

REPORT INFORMATION
  Report Type: Spontaneous
  Country: DE (occurrence: None)
  Receive Date: 20130103
  Receipt Date: 20130103
  Transmission Date: 20140127
  Serious: Yes (Other)
  Sender: FDA-Public Use
  Company Number: AUR-APL-2012-05608

PATIENT
  Sex: Male
  Weight: 2.49 kg

DRUGS (1)
  1. SERTRALINE [Suspect]
     Indication: MAJOR DEPRESSION
     Route: 064

REACTIONS (19)
  - Maternal drugs affecting foetus [None]
  - Caesarean section [None]
  - Premature baby [None]
  - Neonatal respiratory distress syndrome [None]
  - Hyperthermia [None]
  - Hypertonia neonatal [None]
  - Chills [None]
  - Myoclonus [None]
  - Tremor neonatal [None]
  - Irritability [None]
  - Crying [None]
  - Poor sucking reflex [None]
  - Hypotonia neonatal [None]
  - Frequent bowel movements [None]
  - Exposure during breast feeding [None]
  - Foetal exposure during pregnancy [None]
  - Drug withdrawal syndrome neonatal [None]
  - Toxicity to various agents [None]
  - Metabolic disorder [None]
